FAERS Safety Report 4406094-1 (Version None)
Quarter: 2004Q3

REPORT INFORMATION
  Report Type: 
  Country: None (occurrence: None)
  Receive Date: 20040723
  Receipt Date: 20040422
  Transmission Date: 20050211
  Serious: No
  Sender: FDA-Public Use
  Company Number: US-GLAXOSMITHKLINE-A0508086A

PATIENT
  Sex: Female

DRUGS (3)
  1. AVANDIA [Suspect]
     Route: 048
  2. GLUCOPHAGE [Concomitant]
  3. ACCUPRIL [Concomitant]

REACTIONS (3)
  - DRY SKIN [None]
  - LOCAL SWELLING [None]
  - PRURITUS [None]
